FAERS Safety Report 7203423-0 (Version None)
Quarter: 2010Q4

REPORT INFORMATION
  Report Type: 
  Country: None (occurrence: None)
  Receive Date: 20101202
  Receipt Date: 20101202
  Transmission Date: 20110411
  Serious: Yes (Disabling)
  Sender: FDA-Public Use
  Company Number: None

PATIENT
  Sex: Female
  Weight: 72.5755 kg

DRUGS (1)
  1. TETRACYCLINE [Suspect]
     Indication: ACNE
     Dosage: 250 MG 2X'S DAILY ORAL
     Route: 048
     Dates: start: 20090601, end: 20100914

REACTIONS (2)
  - OPTIC NERVE INJURY [None]
  - PAPILLOEDEMA [None]
